FAERS Safety Report 8984445 (Version 3)
Quarter: 2013Q2

REPORT INFORMATION
  Report Type: Spontaneous
  Country: JP (occurrence: JP)
  Receive Date: 20121226
  Receipt Date: 20130410
  Transmission Date: 20140414
  Serious: Yes (Death, Hospitalization)
  Sender: FDA-Public Use
  Company Number: JP-SANOFI-AVENTIS-2012SA094001

PATIENT
  Age: 68 Year
  Sex: Male
  Weight: 32 kg

DRUGS (7)
  1. FLUOROURACIL [Suspect]
     Indication: OESOPHAGEAL CARCINOMA
     Dosage: ON DAY 1-5, EVERY 4 WEEKS
     Route: 042
     Dates: start: 20120216, end: 20120220
  2. CISPLATIN [Suspect]
     Indication: OESOPHAGEAL CARCINOMA
     Dosage: ON DAY 1
     Route: 042
     Dates: start: 20120216, end: 20120216
  3. DOCETAXEL [Suspect]
     Indication: OESOPHAGEAL CARCINOMA
     Dosage: ON DAY 1
     Route: 042
     Dates: start: 20120216, end: 20120216
  4. ROPION [Concomitant]
     Route: 042
     Dates: start: 20120216, end: 20120220
  5. ALOXI [Concomitant]
     Route: 042
     Dates: start: 20120216, end: 20120216
  6. DEXAMETHASONE SODIUM PHOSPHATE [Concomitant]
     Route: 042
     Dates: start: 20120216, end: 20120216
  7. MANNIGEN [Concomitant]
     Dosage: 20 PERCENT
     Route: 042
     Dates: start: 20120216, end: 20120216

REACTIONS (10)
  - Tumour necrosis [Fatal]
  - Oesophageal perforation [Fatal]
  - Oesophagobronchial fistula [Fatal]
  - Productive cough [Fatal]
  - Insomnia [Fatal]
  - Respiratory failure [Fatal]
  - Respiratory depression [Fatal]
  - Altered state of consciousness [Fatal]
  - Dyspnoea [Fatal]
  - Pneumonia [Fatal]
